FAERS Safety Report 21940439 (Version 1)
Quarter: 2023Q1

REPORT INFORMATION
  Report Type: Report from Study
  Country: US (occurrence: US)
  Receive Date: 20230201
  Receipt Date: 20230201
  Transmission Date: 20230418
  Serious: No
  Sender: FDA-Public Use
  Company Number: US-EXELIXIS-CABO-22051104

PATIENT
  Sex: Female

DRUGS (2)
  1. CABOMETYX [Suspect]
     Active Substance: CABOZANTINIB S-MALATE
     Indication: Renal cell carcinoma
     Dosage: 40 MG, QD
     Route: 048
     Dates: start: 202112
  2. CABOMETYX [Suspect]
     Active Substance: CABOZANTINIB S-MALATE
     Indication: Malignant urinary tract neoplasm
     Dosage: 20 MG, QD
     Route: 048

REACTIONS (10)
  - Hyperhidrosis [Unknown]
  - Eye pruritus [Recovered/Resolved]
  - Blood glucose increased [Unknown]
  - Diarrhoea [Unknown]
  - Decreased appetite [Unknown]
  - Asthenia [Unknown]
  - Weight decreased [Unknown]
  - Nausea [Unknown]
  - Vomiting [Unknown]
  - Rash pruritic [Unknown]
